FAERS Safety Report 18799930 (Version 1)
Quarter: 2021Q1

REPORT INFORMATION
  Report Type: Spontaneous
  Country: US (occurrence: US)
  Receive Date: 20210128
  Receipt Date: 20210128
  Transmission Date: 20210419
  Serious: No
  Sender: FDA-Public Use
  Company Number: US-TEVA-2021-US-1871618

PATIENT
  Age: 48 Year
  Sex: Male

DRUGS (3)
  1. TEVA CLONAZEPAM [Suspect]
     Active Substance: CLONAZEPAM
     Dosage: 3 MILLIGRAM DAILY;
     Route: 048
     Dates: start: 2019
  2. TEVA CLONAZEPAM [Suspect]
     Active Substance: CLONAZEPAM
     Dosage: 3 MILLIGRAM DAILY;
     Route: 048
     Dates: start: 202101
  3. TEVA CLONAZEPAM [Suspect]
     Active Substance: CLONAZEPAM
     Indication: SKIN TIGHTNESS
     Dosage: 3 MILLIGRAM DAILY;
     Route: 048
     Dates: end: 2018

REACTIONS (10)
  - Disturbance in attention [Recovered/Resolved]
  - Dizziness [Recovered/Resolved]
  - Off label use [Unknown]
  - Anxiety [Unknown]
  - Dysarthria [Recovered/Resolved]
  - Off label use [Not Recovered/Not Resolved]
  - Disorientation [Recovered/Resolved]
  - Skin tightness [Unknown]
  - Dyspnoea [Recovered/Resolved]
  - Feeling abnormal [Recovered/Resolved]

NARRATIVE: CASE EVENT DATE: 202101
